FAERS Safety Report 20536584 (Version 1)
Quarter: 2022Q1

REPORT INFORMATION
  Report Type: Spontaneous
  Country: US (occurrence: None)
  Receive Date: 20220301
  Receipt Date: 20220301
  Transmission Date: 20220424
  Serious: No
  Sender: FDA-Public Use
  Company Number: None

PATIENT
  Age: 61 Year
  Sex: Female

DRUGS (1)
  1. CAPECITABINE [Suspect]
     Active Substance: CAPECITABINE
     Dosage: 1500MG BID ORAL?
     Route: 048

REACTIONS (5)
  - Jaundice [None]
  - Cholecystitis infective [None]
  - Malaise [None]
  - Gallbladder enlargement [None]
  - Gallbladder neoplasm [None]

NARRATIVE: CASE EVENT DATE: 20220301
